FAERS Safety Report 7567901-7 (Version None)
Quarter: 2011Q2

REPORT INFORMATION
  Report Type: 
  Country: None (occurrence: None)
  Receive Date: 20110623
  Receipt Date: 20110615
  Transmission Date: 20111010
  Serious: Yes (Hospitalization)
  Sender: FDA-Public Use
  Company Number: JP-EISAI INC-E3810-04754-SPO-JP

PATIENT
  Age: 43 Year
  Sex: Male

DRUGS (2)
  1. RABEPRAZOLE SODIUM [Suspect]
     Indication: REFLUX OESOPHAGITIS
     Route: 048
     Dates: start: 20110531, end: 20110614
  2. BERIZYM [Concomitant]
     Route: 048
     Dates: start: 20110531, end: 20110614

REACTIONS (1)
  - RENAL FAILURE ACUTE [None]
